FAERS Safety Report 7338913-3 (Version None)
Quarter: 2011Q1

REPORT INFORMATION
  Report Type: 
  Country: None (occurrence: None)
  Receive Date: 20110308
  Receipt Date: 20110210
  Transmission Date: 20110831
  Serious: No
  Sender: FDA-Public Use
  Company Number: US-B.I. PHARMACEUTICALS,INC./RIDGEFIELD-2010-BP-15387BP

PATIENT
  Age: 74 Year
  Sex: Male

DRUGS (8)
  1. PRADAXA [Suspect]
     Indication: THERAPEUTIC PROCEDURE
  2. ASPIRIN [Concomitant]
     Indication: CARDIAC DISORDER
     Route: 048
     Dates: start: 20040101
  3. TRAMADOL [Concomitant]
     Indication: PAIN
     Route: 048
     Dates: start: 20101101
  4. ZOCOR [Concomitant]
  5. GLIPIZIDE [Concomitant]
  6. PRADAXA [Suspect]
     Indication: ATRIAL FIBRILLATION
     Dosage: 300 MG
     Route: 048
     Dates: start: 20101219
  7. AMOXICILLIN [Concomitant]
     Indication: INFECTION
     Route: 048
     Dates: start: 20101215, end: 20101221
  8. LOPRESSOR [Concomitant]

REACTIONS (3)
  - RECTAL HAEMORRHAGE [None]
  - FAECAL VOLUME INCREASED [None]
  - PUNCTURE SITE HAEMORRHAGE [None]
